FAERS Safety Report 10007368 (Version 3)
Quarter: 2014Q2

REPORT INFORMATION
  Report Type: Spontaneous
  Country: US (occurrence: US)
  Receive Date: 20140313
  Receipt Date: 20140515
  Transmission Date: 20141212
  Serious: Yes (Death, Life-Threatening, Hospitalization)
  Sender: FDA-Public Use
  Company Number: US-GLAXOSMITHKLINE-A1064746A

PATIENT
  Age: 63 Year
  Sex: Female
  Weight: 71 kg

DRUGS (20)
  1. TYKERB [Suspect]
     Indication: BREAST CANCER
     Dosage: 1250MG PER DAY
     Route: 048
     Dates: start: 20140114
  2. XELODA [Suspect]
     Indication: BREAST CANCER METASTATIC
     Dosage: 1000MGM2 VARIABLE DOSE
     Route: 048
     Dates: start: 20140114
  3. RADIATION THERAPY [Suspect]
     Indication: METASTASES TO CENTRAL NERVOUS SYSTEM
     Dates: end: 20131223
  4. TYLENOL [Concomitant]
  5. DILTIAZEM [Concomitant]
  6. LACTULOSE [Concomitant]
  7. ANTIVERT [Concomitant]
  8. OMEPRAZOLE [Concomitant]
  9. POTASSIUM [Concomitant]
  10. LORTAB [Concomitant]
  11. LISINOPRIL [Concomitant]
  12. PROMETHAZINE [Concomitant]
  13. METOCLOPRAMIDE [Concomitant]
  14. SENNA [Concomitant]
  15. CALCIUM [Concomitant]
  16. SIMVASTATIN [Concomitant]
  17. CALCIUM WITH VITAMIN D [Concomitant]
  18. MIRALAX [Concomitant]
  19. ZOFRAN [Concomitant]
  20. SENNA CONCENTRATE + DOCUSATE SODIUM [Concomitant]

REACTIONS (19)
  - Pneumonia aspiration [Fatal]
  - Aspiration [Unknown]
  - Hypoxia [Unknown]
  - Respiratory failure [Unknown]
  - Multi-organ failure [Unknown]
  - Oxygen supplementation [Unknown]
  - Pneumonia [Unknown]
  - Diarrhoea [Recovering/Resolving]
  - Fatigue [Unknown]
  - Dehydration [Unknown]
  - Asthenia [Unknown]
  - Hypokalaemia [Unknown]
  - Alopecia [Unknown]
  - Fluid replacement [Unknown]
  - Weight decreased [Unknown]
  - Decreased appetite [Unknown]
  - Cough [Unknown]
  - Nausea [Unknown]
  - Vomiting [Unknown]
